FAERS Safety Report 16625035 (Version 1)
Quarter: 2019Q3

REPORT INFORMATION
  Report Type: Spontaneous
  Country: US (occurrence: US)
  Receive Date: 20190611
  Receipt Date: 20190611
  Transmission Date: 20191004
  Serious: No
  Sender: FDA-Public Use
  Company Number: None

PATIENT
  Age: 59 Year
  Sex: Female
  Weight: 68.49 kg

DRUGS (1)
  1. FORTEO [Suspect]
     Active Substance: TERIPARATIDE
     Indication: OSTEOARTHRITIS
     Dosage: STRENGTH 600 MCG/2.4 ML PEN INJ
     Route: 058
     Dates: start: 201905

REACTIONS (3)
  - Muscular weakness [None]
  - Fall [None]
  - Balance disorder [None]
